FAERS Safety Report 4629026-X (Version None)
Quarter: 2005Q2

REPORT INFORMATION
  Report Type: 
  Country: None (occurrence: None)
  Receive Date: 20050407
  Receipt Date: 20050329
  Transmission Date: 20051028
  Serious: Yes (Death)
  Sender: FDA-Public Use
  Company Number: GB-BOEHRINGER INGELHEIM PHARMACEUTICALS, INC.-2005-UK-00523UK

PATIENT
  Sex: Female

DRUGS (9)
  1. ATROVENT [Suspect]
     Indication: CHRONIC OBSTRUCTIVE PULMONARY DISEASE
     Route: 055
  2. PREDNISOLONE [Suspect]
     Route: 048
  3. AMOXICILLIN [Suspect]
  4. SALBUTAMOL [Suspect]
  5. IBUPROFEN [Suspect]
     Dosage: 1 TABLET 3 TIMES A DAY
     Route: 048
  6. ALBUTEROL [Suspect]
     Dosage: 4 TABLETS DAILY
     Route: 055
  7. SALMETEROL + FLUTICASONE [Suspect]
     Dosage: SALMETEROL+FLUTICASONE USED TOGETHER. 25/125 INHALER TWO PUFFS TWICE DAILY
     Route: 055
  8. PHYLLOCONTIN [Suspect]
  9. OXYGEN [Suspect]

REACTIONS (2)
  - BRONCHOPNEUMONIA [None]
  - EMPHYSEMA [None]
